FAERS Safety Report 4757079-7 (Version None)
Quarter: 2005Q3

REPORT INFORMATION
  Report Type: 
  Country: None (occurrence: None)
  Receive Date: 20050829
  Receipt Date: 20050829
  Transmission Date: 20060218
  Serious: Yes (Other)
  Sender: FDA-Public Use
  Company Number: None

PATIENT
  Age: 50 Year
  Sex: Male
  Weight: 71.2147 kg

DRUGS (1)
  1. LORCET 10/225 -ONE EVERY 4-6 HRS MALLINCKRODT [Suspect]
     Indication: PAIN
     Dosage: ONE Q 4-6 HRS
     Dates: start: 20030603

REACTIONS (3)
  - DIARRHOEA [None]
  - DRUG EFFECT DECREASED [None]
  - MUSCLE SPASMS [None]
